FAERS Safety Report 10080146 (Version 3)
Quarter: 2014Q2

REPORT INFORMATION
  Report Type: Report from Study
  Country: US (occurrence: US)
  Receive Date: 20140415
  Receipt Date: 20140421
  Transmission Date: 20141212
  Serious: Yes (Death, Hospitalization, Disabling, Other)
  Sender: FDA-Public Use
  Company Number: US-B.I. PHARMACEUTICALS,INC./RIDGEFIELD-2014-BI-12676BI

PATIENT
  Age: 69 Year
  Sex: Female

DRUGS (8)
  1. GILOTRIF [Suspect]
     Indication: NON-SMALL CELL LUNG CANCER
     Dosage: 20 MG
     Route: 048
     Dates: start: 20140102, end: 20140105
  2. GILOTRIF [Suspect]
     Dosage: 40 MG
     Route: 048
     Dates: start: 20140305
  3. GILOTRIF [Suspect]
     Dosage: 40 MG
     Route: 048
     Dates: start: 20140311, end: 20140416
  4. LIPITOR [Concomitant]
     Route: 065
  5. NEXIUM [Concomitant]
     Route: 065
  6. COUMADIN [Concomitant]
     Route: 065
  7. BENADRYL [Concomitant]
     Route: 065
  8. MOISTURIZER [Concomitant]
     Route: 065

REACTIONS (9)
  - Death [Fatal]
  - Pulmonary embolism [Not Recovered/Not Resolved]
  - Abdominal neoplasm [Not Recovered/Not Resolved]
  - Fatigue [Not Recovered/Not Resolved]
  - Diarrhoea [Not Recovered/Not Resolved]
  - Hypophagia [Not Recovered/Not Resolved]
  - Diarrhoea [Not Recovered/Not Resolved]
  - Rash [Not Recovered/Not Resolved]
  - Pruritus [Not Recovered/Not Resolved]
